FAERS Safety Report 8905986 (Version 2)
Quarter: 2012Q4

REPORT INFORMATION
  Report Type: 
  Country: BR (occurrence: BR)
  Receive Date: 20121109
  Receipt Date: 20121220
  Transmission Date: 20130627
  Serious: Yes (Hospitalization)
  Sender: FDA-Public Use
  Company Number: BR-GLAXOSMITHKLINE-A1000356A

PATIENT
  Age: 84 Year
  Sex: Female

DRUGS (2)
  1. REVOLADE [Suspect]
     Indication: IDIOPATHIC THROMBOCYTOPENIC PURPURA
     Route: 048
  2. BLOOD PRESSURE MEDICATION [Concomitant]

REACTIONS (3)
  - Thrombocytosis [Recovered/Resolved]
  - Deep vein thrombosis [Recovered/Resolved]
  - Drug administration error [Recovered/Resolved]
